FAERS Safety Report 10585462 (Version 2)
Quarter: 2015Q1

REPORT INFORMATION
  Report Type: Spontaneous
  Country: US (occurrence: US)
  Receive Date: 20141114
  Receipt Date: 20150126
  Transmission Date: 20150720
  Serious: No
  Sender: FDA-Public Use
  Company Number: US-GLAXOSMITHKLINE-US2014GSK019885

PATIENT
  Sex: Male

DRUGS (28)
  1. TYLENOL [Concomitant]
     Active Substance: ACETAMINOPHEN
  2. MULTIVITAMIN [Concomitant]
     Active Substance: VITAMINS
  3. SPIRONOLACTONE. [Concomitant]
     Active Substance: SPIRONOLACTONE
  4. ADVAIR DISKUS [Suspect]
     Active Substance: FLUTICASONE PROPIONATE\SALMETEROL XINAFOATE
     Indication: LUNG DISORDER
     Dosage: 1 PUFF(S), QD
     Route: 055
     Dates: start: 201209, end: 201407
  5. ATORVASTATIN [Concomitant]
     Active Substance: ATORVASTATIN
  6. IRON [Concomitant]
     Active Substance: IRON
  7. AMARYL [Concomitant]
     Active Substance: GLIMEPIRIDE
  8. COZAAR [Concomitant]
     Active Substance: LOSARTAN POTASSIUM
  9. ROBAXIN [Concomitant]
     Active Substance: METHOCARBAMOL
  10. PREDNISONE. [Concomitant]
     Active Substance: PREDNISONE
  11. DUONEB [Concomitant]
     Active Substance: ALBUTEROL SULFATE\IPRATROPIUM BROMIDE
  12. NEURONTIN [Concomitant]
     Active Substance: GABAPENTIN
  13. ALBUTEROL SULFATE INHALATIONAL POWDER [Concomitant]
  14. ASPIRIN. [Concomitant]
     Active Substance: ASPIRIN
  15. VITAMIN D [Concomitant]
     Active Substance: CHOLECALCIFEROL
  16. ALLOPURINOL. [Concomitant]
     Active Substance: ALLOPURINOL
  17. FUROSEMIDE. [Concomitant]
     Active Substance: FUROSEMIDE
  18. OMEPRAZOLE. [Concomitant]
     Active Substance: OMEPRAZOLE
  19. ZOLOFT [Concomitant]
     Active Substance: SERTRALINE HYDROCHLORIDE
  20. ADVAIR DISKUS [Suspect]
     Active Substance: FLUTICASONE PROPIONATE\SALMETEROL XINAFOATE
     Indication: CHRONIC OBSTRUCTIVE PULMONARY DISEASE
  21. FLONASE [Concomitant]
     Active Substance: FLUTICASONE PROPIONATE
  22. MUCINEX [Concomitant]
     Active Substance: GUAIFENESIN
  23. AMLODIPINE [Concomitant]
     Active Substance: AMLODIPINE BESYLATE
  24. TRAZODONE [Concomitant]
     Active Substance: TRAZODONE HYDROCHLORIDE
  25. UNKNOWN INJECTION [Concomitant]
     Active Substance: UNSPECIFIED INGREDIENT
  26. WELLBUTRIN XL [Concomitant]
     Active Substance: BUPROPION HYDROCHLORIDE
     Dosage: 300 MG, UNK
  27. CELEBREX [Concomitant]
     Active Substance: CELECOXIB
  28. FISH OIL [Concomitant]
     Active Substance: FISH OIL

REACTIONS (6)
  - Therapy cessation [Unknown]
  - Skin exfoliation [Recovered/Resolved]
  - Candida infection [Recovering/Resolving]
  - Throat irritation [Recovered/Resolved]
  - Spinal osteoarthritis [Not Recovered/Not Resolved]
  - Chest discomfort [Unknown]

NARRATIVE: CASE EVENT DATE: 2010
